FAERS Safety Report 12843859 (Version 1)
Quarter: 2016Q4

REPORT INFORMATION
  Report Type: Spontaneous
  Country: GB (occurrence: GB)
  Receive Date: 20161013
  Receipt Date: 20161013
  Transmission Date: 20170207
  Serious: Yes (Other)
  Sender: FDA-Public Use
  Company Number: GB-009507513-1610GBR005179

PATIENT
  Age: 3 Year
  Sex: Male

DRUGS (1)
  1. SINGULAIR [Suspect]
     Active Substance: MONTELUKAST SODIUM
     Indication: ASTHMA
     Dosage: 5 MG, UNK
     Route: 048
     Dates: start: 20120301, end: 20131201

REACTIONS (4)
  - Anger [Recovered/Resolved]
  - Anxiety disorder [Recovered/Resolved]
  - Aggression [Recovered/Resolved]
  - Childhood depression [Recovered/Resolved]

NARRATIVE: CASE EVENT DATE: 2013
